FAERS Safety Report 15704270 (Version 1)
Quarter: 2018Q4

REPORT INFORMATION
  Report Type: Spontaneous
  Country: US (occurrence: US)
  Receive Date: 20181210
  Receipt Date: 20181210
  Transmission Date: 20190205
  Serious: Yes (Hospitalization)
  Sender: FDA-Public Use
  Company Number: None

PATIENT
  Age: 47 Year
  Sex: Male
  Weight: 181.8 kg

DRUGS (2)
  1. AMIODARONE [Suspect]
     Active Substance: AMIODARONE
     Indication: ATRIAL FIBRILLATION
     Route: 042
     Dates: start: 20181210, end: 20181210
  2. DEXTROSE 5% [Suspect]
     Active Substance: DEXTROSE
     Indication: ATRIAL FIBRILLATION
     Dates: start: 20181210, end: 20181210

REACTIONS (4)
  - Feeling abnormal [None]
  - Headache [None]
  - Arthralgia [None]
  - Infusion related reaction [None]

NARRATIVE: CASE EVENT DATE: 20181210
